FAERS Safety Report 23103850 (Version 1)
Quarter: 2023Q4

REPORT INFORMATION
  Report Type: Spontaneous
  Country: HU (occurrence: HU)
  Receive Date: 20231025
  Receipt Date: 20231025
  Transmission Date: 20240110
  Serious: Yes (Other)
  Sender: FDA-Public Use
  Company Number: HU-UCBSA-2023017372

PATIENT
  Sex: Female
  Weight: 75 kg

DRUGS (5)
  1. FINTEPLA [Suspect]
     Active Substance: FENFLURAMINE
     Indication: Severe myoclonic epilepsy of infancy
     Dosage: 8.8 MILLIGRAM, 2X/DAY (BID)
     Route: 048
     Dates: start: 202203
  2. LEVETIRACETAM [Concomitant]
     Active Substance: LEVETIRACETAM
     Indication: Severe myoclonic epilepsy of infancy
     Dosage: 750 MILLIGRAM, 3X/DAY (TID)
  3. VALPROIC ACID [Concomitant]
     Active Substance: VALPROIC ACID
     Indication: Severe myoclonic epilepsy of infancy
     Dosage: 500 MILLIGRAM, 2X/DAY (BID)
  4. SEVENAL [Concomitant]
     Indication: Severe myoclonic epilepsy of infancy
     Dosage: 150 MILLIGRAM, 2X/DAY (BID)
  5. RISPERIDONE [Concomitant]
     Active Substance: RISPERIDONE
     Indication: Severe myoclonic epilepsy of infancy
     Dosage: 0.5 MILLIGRAM, 2X/DAY (BID)

REACTIONS (2)
  - Seizure [Unknown]
  - Maternal exposure during pregnancy [Unknown]
